FAERS Safety Report 5148137-6 (Version None)
Quarter: 2006Q4

REPORT INFORMATION
  Report Type: 
  Country: None (occurrence: None)
  Receive Date: 20061106
  Receipt Date: 20061019
  Transmission Date: 20070319
  Serious: Yes (Other)
  Sender: FDA-Public Use
  Company Number: DSA_28872_2006

PATIENT
  Age: 75 Year
  Sex: Female
  Weight: 60 kg

DRUGS (4)
  1. LORAX [Suspect]
     Indication: INSOMNIA
     Dosage: 1 MG Q DAY PO
     Route: 048
     Dates: start: 19960101, end: 20060401
  2. LORAX [Suspect]
     Indication: INSOMNIA
     Dosage: 0.5 MG Q DAY PO
     Route: 048
     Dates: start: 20060401
  3. BETALOR                         (AMLODIPINE + ATENOLOL) [Concomitant]
  4. ANXIOLYTIC [Concomitant]

REACTIONS (3)
  - DEMENTIA ALZHEIMER'S TYPE [None]
  - NERVOUSNESS [None]
  - PANIC REACTION [None]
